FAERS Safety Report 11930995 (Version 1)
Quarter: 2016Q1

REPORT INFORMATION
  Report Type: Spontaneous
  Country: US (occurrence: US)
  Receive Date: 20160120
  Receipt Date: 20160120
  Transmission Date: 20160526
  Serious: No
  Sender: FDA-Public Use
  Company Number: US-INCYTE CORPORATION-2015IN004331

PATIENT
  Age: 73 Year
  Sex: Male
  Weight: 70.3 kg

DRUGS (1)
  1. JAKAFI [Suspect]
     Active Substance: RUXOLITINIB
     Indication: MYELOFIBROSIS
     Dosage: 25 MG, BID
     Route: 048
     Dates: start: 201402

REACTIONS (2)
  - Drug dose omission [Unknown]
  - Faeces hard [Unknown]

NARRATIVE: CASE EVENT DATE: 20150827
